FAERS Safety Report 5604528-8 (Version None)
Quarter: 2008Q1

REPORT INFORMATION
  Report Type: 
  Country: None (occurrence: None)
  Receive Date: 20080124
  Receipt Date: 20080124
  Transmission Date: 20080703
  Serious: Yes (Life-Threatening, Disabling)
  Sender: FDA-Public Use
  Company Number: None

PATIENT
  Age: 57 Year
  Sex: Male
  Weight: 78 kg

DRUGS (1)
  1. HEPARIN [Suspect]
     Indication: SURGERY
     Dosage: IV
     Route: 042
     Dates: start: 20080121, end: 20080121

REACTIONS (3)
  - BLOOD PRESSURE SYSTOLIC DECREASED [None]
  - DRUG INEFFECTIVE [None]
  - PROCEDURAL COMPLICATION [None]
